FAERS Safety Report 8207015-6 (Version None)
Quarter: 2012Q1

REPORT INFORMATION
  Report Type: 
  Country: None (occurrence: None)
  Receive Date: 20120314
  Receipt Date: 20120305
  Transmission Date: 20120608
  Serious: Yes (Other)
  Sender: FDA-Public Use
  Company Number: US-US-EMD SERONO, INC.-7117207

PATIENT
  Sex: Female

DRUGS (3)
  1. REBIF [Suspect]
     Indication: MULTIPLE SCLEROSIS
  2. IBUPROFEN (ADVIL) [Concomitant]
     Indication: PREMEDICATION
  3. REBIF [Suspect]
     Route: 058
     Dates: start: 20120130

REACTIONS (5)
  - VENOUS INSUFFICIENCY [None]
  - INJECTION SITE ERYTHEMA [None]
  - MULTIPLE SCLEROSIS RELAPSE [None]
  - MUSCLE SPASTICITY [None]
  - HEADACHE [None]
